FAERS Safety Report 23621378 (Version 1)
Quarter: 2024Q1

REPORT INFORMATION
  Report Type: Spontaneous
  Country: US (occurrence: US)
  Receive Date: 20240312
  Receipt Date: 20240312
  Transmission Date: 20240410
  Serious: No
  Sender: FDA-Public Use
  Company Number: US-Eyenovia, Inc.-2154262

PATIENT
  Sex: Female

DRUGS (1)
  1. MYDCOMBI [Suspect]
     Active Substance: PHENYLEPHRINE HYDROCHLORIDE\TROPICAMIDE

REACTIONS (1)
  - Ear pain [Recovered/Resolved]

NARRATIVE: CASE EVENT DATE: 20240305
